FAERS Safety Report 18427965 (Version 3)
Quarter: 2021Q1

REPORT INFORMATION
  Report Type: Report from Study
  Country: US (occurrence: US)
  Receive Date: 20201026
  Receipt Date: 20210302
  Transmission Date: 20210419
  Serious: Yes (Life-Threatening, Hospitalization)
  Sender: FDA-Public Use
  Company Number: US-PFIZER INC-2020410966

PATIENT
  Age: 16 Year
  Sex: Male
  Weight: 68.1 kg

DRUGS (14)
  1. MERCAPTOPURINE. [Suspect]
     Active Substance: MERCAPTOPURINE
     Dosage: 450 MG, WEEKLY, TABLET
     Route: 048
     Dates: start: 20191212
  2. MERCAPTOPURINE. [Suspect]
     Active Substance: MERCAPTOPURINE
     Indication: ACUTE LYMPHOCYTIC LEUKAEMIA
     Dosage: 900 MG, WEEKLY, TABLET
     Route: 048
     Dates: start: 20161116, end: 20191120
  3. ZOFRAN [Concomitant]
     Active Substance: ONDANSETRON HYDROCHLORIDE
     Dosage: UNK
     Dates: start: 20161116
  4. PREDNISONE. [Suspect]
     Active Substance: PREDNISONE
     Indication: ACUTE LYMPHOCYTIC LEUKAEMIA
     Dosage: 35 MG, BID, TABLET
     Route: 048
     Dates: start: 20161011, end: 20191112
  5. ALBUTEROL HFA [Concomitant]
     Active Substance: ALBUTEROL SULFATE
     Dosage: UNK
     Dates: start: 20170928, end: 20190131
  6. VINCRISTINE SULFATE. [Suspect]
     Active Substance: VINCRISTINE SULFATE
     Indication: ACUTE LYMPHOCYTIC LEUKAEMIA
     Dosage: 2 MG, ONCE
     Route: 042
     Dates: start: 20161011
  7. METHOTREXATE SODIUM. [Suspect]
     Active Substance: METHOTREXATE SODIUM
     Dosage: 15 MG
     Route: 037
     Dates: start: 20200102
  8. METHOTREXATE. [Suspect]
     Active Substance: METHOTREXATE
     Dosage: 17.2 MG, WEEKLY (10MG/M2/DOSE), TABLET
     Route: 048
     Dates: start: 20191212
  9. METHOTREXATE SODIUM. [Suspect]
     Active Substance: METHOTREXATE SODIUM
     Indication: ACUTE LYMPHOCYTIC LEUKAEMIA
     Dosage: 15 MG
     Route: 037
     Dates: start: 20161018, end: 20190913
  10. INCB018424 [Suspect]
     Active Substance: RUXOLITINIB
     Dosage: 85 MG, BID, TABLET
     Route: 048
     Dates: start: 20191212
  11. LORATADINE. [Concomitant]
     Active Substance: LORATADINE
     Dosage: UNK
     Dates: start: 20170915
  12. INCB018424 [Suspect]
     Active Substance: RUXOLITINIB
     Indication: ACUTE LYMPHOCYTIC LEUKAEMIA
     Dosage: 90 MG, BID, TABLET
     Route: 048
     Dates: start: 20161116, end: 20191205
  13. PREDNISONE. [Suspect]
     Active Substance: PREDNISONE
     Dosage: 35 MG, BID, TABLET
     Route: 048
     Dates: start: 20200102
  14. METHOTREXATE. [Suspect]
     Active Substance: METHOTREXATE
     Indication: ACUTE LYMPHOCYTIC LEUKAEMIA
     Dosage: 35 MG, WEEKLY (15MG/M2), TABLET
     Route: 048
     Dates: start: 20170130, end: 20191107

REACTIONS (6)
  - Pyrexia [Recovered/Resolved]
  - Parainfluenzae virus infection [Recovered/Resolved]
  - Adenovirus infection [Recovered/Resolved]
  - Febrile neutropenia [Recovered/Resolved]
  - Adenovirus infection [Recovered/Resolved]
  - Pneumonia [Recovered/Resolved]

NARRATIVE: CASE EVENT DATE: 20191114
